FAERS Safety Report 24713378 (Version 1)
Quarter: 2024Q4

REPORT INFORMATION
  Report Type: Spontaneous
  Country: US (occurrence: US)
  Receive Date: 20241209
  Receipt Date: 20241209
  Transmission Date: 20250115
  Serious: Yes (Hospitalization)
  Sender: CSL BEHRING
  Company Number: US-Vifor (International) Inc.-VIT-2024-08683

PATIENT
  Sex: Female

DRUGS (1)
  1. VELTASSA [Suspect]
     Active Substance: PATIROMER
     Indication: Hyperkalaemia
     Dosage: 8.4,G,UNK
     Route: 065
     Dates: start: 20240914

REACTIONS (2)
  - Eye swelling [Unknown]
  - Dyspnoea [Unknown]

NARRATIVE: CASE EVENT DATE: 20240901
